FAERS Safety Report 17594641 (Version 1)
Quarter: 2020Q3

REPORT INFORMATION
  Report Type: Report from Study
  Country: CR (occurrence: CR)
  Receive Date: 20200327
  Receipt Date: 20200327
  Transmission Date: 20201104
  Serious: Yes (Other)
  Sender: FDA-Public Use
  Company Number: NVSC2020CR084545

PATIENT
  Age: 64 Year
  Sex: Female

DRUGS (3)
  1. GALVUS [Suspect]
     Active Substance: VILDAGLIPTIN
     Indication: PRODUCT USED FOR UNKNOWN INDICATION
     Dosage: 50 MG, QD IN THE MORNING
     Route: 065
  2. GALVUS MET [Suspect]
     Active Substance: METFORMIN HYDROCHLORIDE\VILDAGLIPTIN
     Dosage: 1 DF (850/50 MG), BID
     Route: 065
  3. GALVUS MET [Suspect]
     Active Substance: METFORMIN HYDROCHLORIDE\VILDAGLIPTIN
     Indication: PRODUCT USED FOR UNKNOWN INDICATION
     Dosage: 1 DF (850/50 MG), QD AT NIGHT
     Route: 065

REACTIONS (5)
  - Dysphonia [Unknown]
  - Influenza [Unknown]
  - Cough [Unknown]
  - Hyperglycaemia [Unknown]
  - Aphonia [Unknown]
